FAERS Safety Report 8862447 (Version 2)
Quarter: 2012Q4

REPORT INFORMATION
  Report Type: 
  Country: IT (occurrence: IT)
  Receive Date: 20121026
  Receipt Date: 20121126
  Transmission Date: 20130627
  Serious: Yes (Other)
  Sender: FDA-Public Use
  Company Number: IT-JNJFOC-20121010897

PATIENT
  Sex: Female

DRUGS (38)
  1. VINCRISTINE [Suspect]
     Indication: EWING^S SARCOMA
     Dosage: protocol REN-2
     Route: 065
  2. VINCRISTINE [Suspect]
     Indication: EWING^S SARCOMA
     Dosage: protocol REN-1
     Route: 065
  3. DACTINOMYCIN [Suspect]
     Indication: EWING^S SARCOMA
     Dosage: protocol ISG/SSG III for poor responder
     Route: 065
  4. DACTINOMYCIN [Suspect]
     Indication: EWING^S SARCOMA
     Dosage: protocol REN-3
     Route: 065
  5. DACTINOMYCIN [Suspect]
     Indication: EWING^S SARCOMA
     Dosage: protocol REN-2
     Route: 065
  6. DACTINOMYCIN [Suspect]
     Indication: EWING^S SARCOMA
     Dosage: protocol REN-1
     Route: 065
  7. DACTINOMYCIN [Suspect]
     Indication: EWING^S SARCOMA
     Dosage: protocol ISG/SSG III for good responder
     Route: 065
  8. CYCLOPHOSPHAMIDE [Suspect]
     Indication: EWING^S SARCOMA
     Dosage: protocol ISG/SSG III for poor responder
     Route: 065
  9. CYCLOPHOSPHAMIDE [Suspect]
     Indication: EWING^S SARCOMA
     Dosage: protocol ISG/SSG III for good responder
     Route: 065
  10. CYCLOPHOSPHAMIDE [Suspect]
     Indication: EWING^S SARCOMA
     Dosage: protocol REN-2
     Route: 065
  11. CYCLOPHOSPHAMIDE [Suspect]
     Indication: EWING^S SARCOMA
     Dosage: protocol REN-1
     Route: 065
  12. IFOSFAMIDE [Suspect]
     Indication: EWING^S SARCOMA
     Dosage: protocol ISG/SSG III for poor responder
     Route: 065
  13. IFOSFAMIDE [Suspect]
     Indication: EWING^S SARCOMA
     Dosage: protocol ISG/SSG III for good responder
     Route: 065
  14. IFOSFAMIDE [Suspect]
     Indication: EWING^S SARCOMA
     Dosage: protocol REN-3
     Route: 065
  15. IFOSFAMIDE [Suspect]
     Indication: EWING^S SARCOMA
     Dosage: protocol REN-2
     Route: 065
  16. ETOPOSIDE [Suspect]
     Indication: EWING^S SARCOMA
     Dosage: protocol REN-3
     Route: 065
  17. ETOPOSIDE [Suspect]
     Indication: EWING^S SARCOMA
     Dosage: protocol ISG/SSG III for good responder
     Route: 065
  18. ETOPOSIDE [Suspect]
     Indication: EWING^S SARCOMA
     Dosage: protocol ISG/SSG III for poor responder
     Route: 065
  19. ETOPOSIDE [Suspect]
     Indication: EWING^S SARCOMA
     Dosage: protocol REN-2
     Route: 065
  20. BUSULFAN [Suspect]
     Indication: EWING^S SARCOMA
     Dosage: on days 1-4, protocol ISG/SSG III for poor responder
     Route: 065
  21. MELPHALAN [Suspect]
     Indication: EWING^S SARCOMA
     Dosage: on day 5, protocol ISG/SSG III for poor responder
     Route: 065
  22. RADIOTHERAPY [Suspect]
     Indication: EWING^S SARCOMA
     Dosage: 45 to 54 Gy (protocol ISG/SSG III)
     Route: 065
  23. RADIOTHERAPY [Suspect]
     Indication: EWING^S SARCOMA
     Dosage: 45 to 55 Gy (protocol REN-1)
     Route: 065
  24. RADIOTHERAPY [Suspect]
     Indication: EWING^S SARCOMA
     Dosage: 45 to 60 Gy (protocol REN-3)
     Route: 065
  25. RADIOTHERAPY [Suspect]
     Indication: EWING^S SARCOMA
     Dosage: 44 to 60 Gy (protocol REN-2)
     Route: 065
  26. DOXORUBICIN [Suspect]
     Indication: EWING^S SARCOMA
     Dosage: protocol ISG/SSG III for poor responder
     Route: 042
  27. DOXORUBICIN [Suspect]
     Indication: EWING^S SARCOMA
     Dosage: protocol ISG/SSG III for good responder
     Route: 042
  28. DOXORUBICIN [Suspect]
     Indication: EWING^S SARCOMA
     Dosage: protocol REN-3
     Route: 042
  29. DOXORUBICIN [Suspect]
     Indication: EWING^S SARCOMA
     Dosage: protocol REN-1
     Route: 042
  30. DOXORUBICIN [Suspect]
     Indication: EWING^S SARCOMA
     Dosage: protocol REN-2
     Route: 042
  31. DOXORUBICIN HYDROCHLORIDE [Suspect]
     Indication: EWING^S SARCOMA
     Dosage: protocol ISG/SSG III for good responder
     Route: 065
  32. DOXORUBICIN HYDROCHLORIDE [Suspect]
     Indication: EWING^S SARCOMA
     Dosage: protocol ISG/SSG III for poor responder
     Route: 065
  33. DOXORUBICIN HYDROCHLORIDE [Suspect]
     Indication: EWING^S SARCOMA
     Dosage: protocol REN-3
     Route: 065
  34. DOXORUBICIN HYDROCHLORIDE [Suspect]
     Indication: EWING^S SARCOMA
     Dosage: protocol REN-1
     Route: 065
  35. DOXORUBICIN HYDROCHLORIDE [Suspect]
     Indication: EWING^S SARCOMA
     Dosage: protocol REN-2
     Route: 065
  36. VINCRISTINE [Suspect]
     Indication: EWING^S SARCOMA
     Dosage: protocol ISG/SSG III for poor responder
     Route: 065
  37. VINCRISTINE [Suspect]
     Indication: EWING^S SARCOMA
     Dosage: protocol REN-3
     Route: 065
  38. VINCRISTINE [Suspect]
     Indication: EWING^S SARCOMA
     Dosage: protocol ISG/SSG III for good responder
     Route: 065

REACTIONS (3)
  - Premature labour [Recovered/Resolved]
  - Exposure during pregnancy [Recovered/Resolved]
  - Off label use [Unknown]
